FAERS Safety Report 12522103 (Version 3)
Quarter: 2016Q3

REPORT INFORMATION
  Report Type: Spontaneous
  Country: JP (occurrence: JP)
  Receive Date: 20160701
  Receipt Date: 20160803
  Transmission Date: 20161109
  Serious: Yes (Hospitalization, Other)
  Sender: FDA-Public Use
  Company Number: JP-GLAXOSMITHKLINE-JP2016JPN082563

PATIENT
  Age: 57 Year
  Sex: Male

DRUGS (7)
  1. ROHYPNOL [Concomitant]
     Active Substance: FLUNITRAZEPAM
     Dosage: 2 MG, QD
  2. LITHIUM CARBONATE. [Concomitant]
     Active Substance: LITHIUM CARBONATE
     Indication: BIPOLAR DISORDER
     Dosage: UNK
     Dates: end: 201601
  3. LAMICTAL [Suspect]
     Active Substance: LAMOTRIGINE
     Dosage: 50 MG, QD
     Route: 048
     Dates: start: 20160401, end: 20160505
  4. SOLANAX [Concomitant]
     Active Substance: ALPRAZOLAM
     Dosage: 0.4 MG, TID
  5. LAMICTAL [Suspect]
     Active Substance: LAMOTRIGINE
     Indication: BIPOLAR DISORDER
     Dosage: 25 MG, QD
     Route: 048
     Dates: start: 20160108, end: 20160204
  6. LAMICTAL [Suspect]
     Active Substance: LAMOTRIGINE
     Dosage: 50 MG, QD
     Route: 048
     Dates: start: 20160205, end: 20160303
  7. LAMICTAL [Suspect]
     Active Substance: LAMOTRIGINE
     Dosage: 75 MG, QD
     Route: 048
     Dates: start: 20160304, end: 20160331

REACTIONS (24)
  - Anuria [Unknown]
  - Fall [Unknown]
  - Blood pressure decreased [Recovering/Resolving]
  - Acute kidney injury [Unknown]
  - Rash erythematous [Recovered/Resolved]
  - Skin ulcer [Recovered/Resolved]
  - Blepharospasm [Unknown]
  - Cholelithiasis [Unknown]
  - Seizure [Unknown]
  - Mental impairment [Unknown]
  - Gait disturbance [Unknown]
  - Hepatic steatosis [Unknown]
  - Vomiting [Unknown]
  - Pneumonia [Unknown]
  - Restlessness [Recovering/Resolving]
  - Altered state of consciousness [Recovered/Resolved]
  - Blood creatine phosphokinase increased [Unknown]
  - Memory impairment [Unknown]
  - Sputum retention [Unknown]
  - Scar [Unknown]
  - General physical health deterioration [Unknown]
  - Hyperhidrosis [Unknown]
  - Dysarthria [Unknown]
  - Liver function test increased [Unknown]

NARRATIVE: CASE EVENT DATE: 201605
